FAERS Safety Report 24770050 (Version 1)
Quarter: 2024Q4

REPORT INFORMATION
  Report Type: Spontaneous
  Country: US (occurrence: US)
  Receive Date: 20241224
  Receipt Date: 20241224
  Transmission Date: 20250114
  Serious: Yes (Other)
  Sender: ABBVIE
  Company Number: US-ABBVIE-6053675

PATIENT
  Age: 82 Year
  Sex: Female

DRUGS (1)
  1. REFRESH PLUS [Suspect]
     Active Substance: CARBOXYMETHYLCELLULOSE SODIUM
     Indication: Dry eye
     Dosage: FORM STRENGTH:  5MG/ML
     Route: 047

REACTIONS (5)
  - Blindness unilateral [Unknown]
  - Muscle spasms [Unknown]
  - Product quality issue [Not Recovered/Not Resolved]
  - Visual impairment [Unknown]
  - Product packaging quantity issue [Not Recovered/Not Resolved]

NARRATIVE: CASE EVENT DATE: 20241201
